FAERS Safety Report 9154413 (Version 2)
Quarter: 2013Q1

REPORT INFORMATION
  Report Type: Spontaneous
  Country: JP (occurrence: None)
  Receive Date: 20130307
  Receipt Date: 20130328
  Transmission Date: 20140127
  Serious: Yes (Death)
  Sender: FDA-Public Use
  Company Number: DSJ-2013-04250

PATIENT
  Age: 77 Year
  Sex: Male

DRUGS (5)
  1. OLMETEC [Suspect]
     Indication: PRODUCT USED FOR UNKNOWN INDICATION
  2. ARTIST [Suspect]
     Indication: HYPERTENSION
  3. ADALAT CR [Suspect]
     Indication: PRODUCT USED FOR UNKNOWN INDICATION
  4. NATRIX [Suspect]
     Indication: PRODUCT USED FOR UNKNOWN INDICATION
  5. LASIX (FUROSEMIDE) (FUROSEMIDE) [Suspect]
     Indication: PRODUCT USED FOR UNKNOWN INDICATION

REACTIONS (3)
  - Acute myocardial infarction [None]
  - Dehydration [None]
  - Diarrhoea [None]
